FAERS Safety Report 8821333 (Version 1)
Quarter: 2012Q4

REPORT INFORMATION
  Report Type: 
  Country: US (occurrence: US)
  Receive Date: 20121002
  Receipt Date: 20121002
  Transmission Date: 20130627
  Serious: Yes (Other)
  Sender: FDA-Public Use
  Company Number: US-BAYER-2012-100471

PATIENT
  Sex: Female

DRUGS (3)
  1. MIRENA [Suspect]
     Dosage: 20 mcg/24hr, CONT
     Dates: start: 2007, end: 2008
  2. MIRENA [Suspect]
     Dosage: 20 mcg/24hr, CONT
     Dates: start: 2008, end: 2010
  3. MIRENA [Suspect]
     Dosage: 20 mcg/24hr, CONT
     Dates: start: 201201

REACTIONS (5)
  - Device dislocation [None]
  - Amenorrhoea [None]
  - Genital haemorrhage [Recovered/Resolved]
  - Abdominal pain lower [None]
  - Genital haemorrhage [None]
